FAERS Safety Report 7225591-7 (Version None)
Quarter: 2011Q1

REPORT INFORMATION
  Report Type: 
  Country: None (occurrence: None)
  Receive Date: 20110113
  Receipt Date: 20110105
  Transmission Date: 20110831
  Serious: Yes (Hospitalization)
  Sender: FDA-Public Use
  Company Number: US-SANOFI-AVENTIS-2011SA001261

PATIENT
  Age: 67 Year
  Sex: Female

DRUGS (3)
  1. LANTUS [Suspect]
     Dosage: DOSE:70 UNIT(S)
     Route: 058
  2. SOLOSTAR [Suspect]
     Dates: start: 20090101
  3. LANTUS [Suspect]
     Route: 058
     Dates: start: 20090101

REACTIONS (2)
  - COLON OPERATION [None]
  - DEVICE MALFUNCTION [None]
